FAERS Safety Report 7412410-9 (Version None)
Quarter: 2011Q2

REPORT INFORMATION
  Report Type: 
  Country: None (occurrence: None)
  Receive Date: 20110413
  Receipt Date: 20110331
  Transmission Date: 20111010
  Serious: Yes (Other)
  Sender: FDA-Public Use
  Company Number: PHHY2011CA28239

PATIENT
  Sex: Male

DRUGS (9)
  1. VITAMIN D [Concomitant]
  2. METOPROLOL TARTRATE [Concomitant]
     Indication: ATRIAL FIBRILLATION
     Dosage: 75 MG, BID
  3. MULTI-VITAMINS [Concomitant]
  4. EXJADE [Suspect]
     Indication: MYELODYSPLASTIC SYNDROME
     Dosage: 1000 MG, QD
     Route: 048
     Dates: start: 20110101
  5. ACTONEL [Concomitant]
  6. CALCIUM [Concomitant]
  7. PREDNISONE [Concomitant]
     Indication: POLYCHONDRITIS
     Dosage: 10 MG, QD
  8. CIPRO [Concomitant]
     Dosage: 1 DF, QOD
  9. PANTOPRAZOLE [Concomitant]
     Dosage: 40 MG, QD

REACTIONS (2)
  - GASTROINTESTINAL MOTILITY DISORDER [None]
  - HAEMOGLOBIN DECREASED [None]
